FAERS Safety Report 8590983-0 (Version None)
Quarter: 2012Q3

REPORT INFORMATION
  Report Type: 
  Country: None (occurrence: None)
  Receive Date: 20120813
  Receipt Date: 20120726
  Transmission Date: 20120928
  Serious: No
  Sender: FDA-Public Use
  Company Number: US-ASTRAZENECA-2012SE53612

PATIENT
  Age: 35 Year
  Sex: Male
  Weight: 120.2 kg

DRUGS (6)
  1. SEROQUEL [Suspect]
     Indication: HALLUCINATION, AUDITORY
     Dosage: 300MG IN THE MORNING AND 600MG AT NIGHT
     Route: 048
     Dates: start: 20050101, end: 20120601
  2. IBUPROFEN [Concomitant]
  3. SEROQUEL [Suspect]
     Indication: SCHIZOPHRENIA
     Dosage: 300MG IN THE MORNING AND 600MG AT NIGHT
     Route: 048
     Dates: start: 20050101, end: 20120601
  4. PRAZOSIN [Concomitant]
  5. SEROQUEL [Suspect]
     Indication: POST-TRAUMATIC STRESS DISORDER
     Dosage: 300MG IN THE MORNING AND 600MG AT NIGHT
     Route: 048
     Dates: start: 20050101, end: 20120601
  6. WELLBUTRIN [Concomitant]

REACTIONS (3)
  - HALLUCINATION, AUDITORY [None]
  - WEIGHT INCREASED [None]
  - DRUG DOSE OMISSION [None]
